FAERS Safety Report 11777020 (Version 1)
Quarter: 2015Q4

REPORT INFORMATION
  Report Type: Spontaneous
  Country: US (occurrence: None)
  Receive Date: 20151124
  Receipt Date: 20151124
  Transmission Date: 20160304
  Serious: Yes (Life-Threatening, Hospitalization)
  Sender: FDA-Public Use
  Company Number: None

PATIENT
  Age: 28 Year
  Sex: Male
  Weight: 104.33 kg

DRUGS (6)
  1. WELLBUTRIN [Concomitant]
     Active Substance: BUPROPION HYDROCHLORIDE
  2. VISTARIL [Concomitant]
     Active Substance: HYDROXYZINE PAMOATE
  3. MULTI VITAMINS [Concomitant]
  4. LATUDA [Suspect]
     Active Substance: LURASIDONE HYDROCHLORIDE
     Indication: BIPOLAR DISORDER
     Route: 048
  5. REMERON [Concomitant]
     Active Substance: MIRTAZAPINE
  6. LATUDA [Concomitant]
     Active Substance: LURASIDONE HYDROCHLORIDE

REACTIONS (6)
  - Suicidal ideation [None]
  - Restlessness [None]
  - Irritability [None]
  - Feeling abnormal [None]
  - Agitation [None]
  - Gynaecomastia [None]

NARRATIVE: CASE EVENT DATE: 20151122
